FAERS Safety Report 5705483-2 (Version None)
Quarter: 2008Q2

REPORT INFORMATION
  Report Type: 
  Country: None (occurrence: None)
  Receive Date: 20080411
  Receipt Date: 20080331
  Transmission Date: 20081010
  Serious: Yes (Other)
  Sender: FDA-Public Use
  Company Number: S08-USA-01276-01

PATIENT
  Age: 46 Year
  Sex: Female

DRUGS (5)
  1. LEXAPRO [Suspect]
     Indication: ANXIETY
     Dosage: 10 MG ONCE PO
     Route: 048
     Dates: start: 20041001, end: 20041001
  2. LEXAPRO [Suspect]
     Indication: ANXIETY
     Dosage: 2.5 MG QD PO
     Route: 048
     Dates: start: 20041001, end: 20041001
  3. LEXAPRO [Suspect]
     Indication: ANXIETY
     Dates: start: 20041001, end: 20060927
  4. LEXAPRO [Suspect]
     Indication: ANXIETY
     Dosage: 10 MG QD PO
     Route: 048
     Dates: start: 20060928, end: 20061025
  5. LEXAPRO [Suspect]
     Indication: ANXIETY
     Dosage: 20 MG QD PO
     Route: 048
     Dates: start: 20061026, end: 20061109

REACTIONS (10)
  - AUTOIMMUNE THYROIDITIS [None]
  - CONTUSION [None]
  - DYSKINESIA [None]
  - ENCEPHALITIS [None]
  - FALL [None]
  - GAIT DISTURBANCE [None]
  - HYPERTENSION [None]
  - INCORRECT DOSE ADMINISTERED [None]
  - MALAISE [None]
  - THYROID NEOPLASM [None]
